FAERS Safety Report 23548311 (Version 1)
Quarter: 2024Q1

REPORT INFORMATION
  Report Type: Spontaneous
  Country: US (occurrence: None)
  Receive Date: 20240220
  Receipt Date: 20240220
  Transmission Date: 20240410
  Serious: Yes (Hospitalization)
  Sender: FDA-Public Use
  Company Number: None

PATIENT
  Sex: Female

DRUGS (4)
  1. CAPECITABINE [Suspect]
     Active Substance: CAPECITABINE
     Indication: Rectal cancer
     Dosage: FREQUENCY : AS DIRECTED;?
     Route: 048
     Dates: start: 202402
  2. LEUPROLIDE ACET [Concomitant]
  3. GAINIRELIX ACETATE [Concomitant]
  4. FOLLISTIM AQ [Concomitant]
     Active Substance: FOLLITROPIN

REACTIONS (1)
  - Hospitalisation [None]
